FAERS Safety Report 7716007-2 (Version None)
Quarter: 2011Q3

REPORT INFORMATION
  Report Type: 
  Country: None (occurrence: None)
  Receive Date: 20110812
  Receipt Date: 20110613
  Transmission Date: 20111222
  Serious: Yes (Hospitalization)
  Sender: FDA-Public Use
  Company Number: MEDI-0012762

PATIENT
  Age: 12 Month
  Sex: Male
  Weight: 7.53 kg

DRUGS (7)
  1. SYNAGIS [Suspect]
     Dates: start: 20101211, end: 20101211
  2. SYNAGIS [Suspect]
     Dates: start: 20110208, end: 20110405
  3. POLY-VI-SOL WITH IRON(FERROUS SULFATE, VITAMINS NOS) [Concomitant]
  4. SIMPLYTHICK [Concomitant]
  5. PRED FORTE [Concomitant]
  6. PREVACID [Concomitant]
  7. ALDACTAZIDE (SPIRONOLACTONE, HYDROCHLOROTHIAZIDE) [Concomitant]

REACTIONS (5)
  - RESPIRATORY SYNCYTIAL VIRUS TEST POSITIVE [None]
  - POST-TUSSIVE VOMITING [None]
  - EYE DISCHARGE [None]
  - SINUSITIS [None]
  - RASH [None]
